FAERS Safety Report 25603609 (Version 2)
Quarter: 2025Q3

REPORT INFORMATION
  Report Type: Spontaneous
  Country: US (occurrence: US)
  Receive Date: 20250725
  Receipt Date: 20250801
  Transmission Date: 20251021
  Serious: No
  Sender: ROCHE
  Company Number: US-ROCHE-10000343201

PATIENT
  Sex: Female
  Weight: 63.5 kg

DRUGS (3)
  1. XOLAIR PFS [Suspect]
     Active Substance: OMALIZUMAB
     Indication: Idiopathic urticaria
     Dosage: STRENGTH: 150MG/ML
     Route: 058
     Dates: start: 202212
  2. XOLAIR PFS [Suspect]
     Active Substance: OMALIZUMAB
  3. ROSEMARY OIL [Suspect]
     Active Substance: ROSEMARY OIL
     Indication: Product used for unknown indication
     Route: 065

REACTIONS (2)
  - Swollen tongue [Unknown]
  - Lip swelling [Unknown]
